FAERS Safety Report 19198696 (Version 2)
Quarter: 2021Q2

REPORT INFORMATION
  Report Type: Spontaneous
  Country: IT (occurrence: IT)
  Receive Date: 20210430
  Receipt Date: 20210616
  Transmission Date: 20210717
  Serious: Yes (Other)
  Sender: FDA-Public Use
  Company Number: IT-LUPIN PHARMACEUTICALS INC.-2021-05765

PATIENT
  Age: 75 Year
  Sex: Female

DRUGS (6)
  1. HYDROXYCHLOROQUINE [Suspect]
     Active Substance: HYDROXYCHLOROQUINE
     Indication: COVID-19 PNEUMONIA
     Dosage: 400 MILLIGRAM, BID
     Route: 065
     Dates: start: 2020, end: 2020
  2. AZITHROMYCIN ANHYDROUS. [Suspect]
     Active Substance: AZITHROMYCIN ANHYDROUS
     Indication: COVID-19 PNEUMONIA
     Dosage: 500 MILLIGRAM, ON DAY 1
     Route: 065
     Dates: start: 2020, end: 2020
  3. HYDROXYCHLOROQUINE [Suspect]
     Active Substance: HYDROXYCHLOROQUINE
     Dosage: 200 MILLIGRAM, BID
     Route: 065
     Dates: start: 2020, end: 2020
  4. ENOXAPARIN [Suspect]
     Active Substance: ENOXAPARIN
     Indication: COVID-19 PNEUMONIA
     Dosage: 4000 INTERNATIONAL UNIT, QD
     Route: 058
     Dates: start: 2020
  5. AZITHROMYCIN ANHYDROUS. [Suspect]
     Active Substance: AZITHROMYCIN ANHYDROUS
     Dosage: 250 MILLIGRAM, FOR SEVEN DAYS
     Route: 065
     Dates: start: 2020, end: 2020
  6. LOPINAVIR/RITONAVIR [Suspect]
     Active Substance: LOPINAVIR\RITONAVIR
     Indication: COVID-19 PNEUMONIA
     Dosage: UNK, 200/100 TWICE DAILY
     Route: 065
     Dates: start: 2020, end: 2020

REACTIONS (1)
  - Off label use [Unknown]

NARRATIVE: CASE EVENT DATE: 2020
